FAERS Safety Report 9895872 (Version 2)
Quarter: 2014Q1

REPORT INFORMATION
  Report Type: Spontaneous
  Country: US (occurrence: US)
  Receive Date: 20140213
  Receipt Date: 20140213
  Transmission Date: 20141002
  Serious: No
  Sender: FDA-Public Use
  Company Number: US-BRISTOL-MYERS SQUIBB COMPANY-17297086

PATIENT
  Age: 48 Year
  Sex: Female
  Weight: 83.9 kg

DRUGS (7)
  1. ABATACEPT SUBQ INJECTION 125MG/ML [Suspect]
     Indication: RHEUMATOID ARTHRITIS
     Route: 058
     Dates: start: 20121126, end: 20121126
  2. PERCOCET [Concomitant]
  3. METHADONE [Concomitant]
  4. INSULIN [Concomitant]
  5. ALESSE [Concomitant]
  6. CRESTOR [Concomitant]
  7. ASPIRIN [Concomitant]

REACTIONS (2)
  - Headache [Recovered/Resolved]
  - Blood glucose increased [Unknown]
